FAERS Safety Report 18928108 (Version 1)
Quarter: 2021Q1

REPORT INFORMATION
  Report Type: Spontaneous
  Country: US (occurrence: US)
  Receive Date: 20210223
  Receipt Date: 20210223
  Transmission Date: 20210420
  Serious: Yes (Death)
  Sender: FDA-Public Use
  Company Number: None

PATIENT
  Age: 24 Year
  Sex: Male

DRUGS (5)
  1. SF 5000 PLUS [Concomitant]
     Active Substance: SODIUM FLUORIDE
  2. DEXAMETHASON [Concomitant]
     Active Substance: DEXAMETHASONE
  3. CLONAZEP ODT [Concomitant]
  4. UDENYCA [Suspect]
     Active Substance: PEGFILGRASTIM-CBQV
     Indication: ENDOCRINE NEOPLASM MALIGNANT
     Dosage: ?          OTHER FREQUENCY:EVERY 21 DAYS;?
     Route: 058
     Dates: start: 20200720
  5. NAYZILAM [Concomitant]
     Active Substance: MIDAZOLAM

REACTIONS (1)
  - Death [None]
